FAERS Safety Report 4307718-X (Version None)
Quarter: 2004Q1

REPORT INFORMATION
  Report Type: 
  Country: None (occurrence: None)
  Receive Date: 20040227
  Receipt Date: 20040227
  Transmission Date: 20041129
  Serious: Yes (Hospitalization)
  Sender: FDA-Public Use
  Company Number: None

PATIENT
  Age: 72 Year
  Sex: Male
  Weight: 97.1 kg

DRUGS (2)
  1. FLUOROURACIL [Suspect]
  2. HYDROCODONE/APAP [Concomitant]

REACTIONS (4)
  - DEHYDRATION [None]
  - HEADACHE [None]
  - NAUSEA [None]
  - VOMITING [None]
